FAERS Safety Report 25763520 (Version 1)
Quarter: 2025Q3

REPORT INFORMATION
  Report Type: Spontaneous
  Country: US (occurrence: US)
  Receive Date: 20250905
  Receipt Date: 20250905
  Transmission Date: 20251020
  Serious: No
  Sender: DOMPE FARMACEUTICI
  Company Number: US-FARMAPROD-202410-3606

PATIENT
  Sex: Female

DRUGS (10)
  1. OXERVATE [Suspect]
     Active Substance: CENEGERMIN-BKBJ
     Indication: Neurotrophic keratopathy
     Route: 047
     Dates: start: 20240903
  2. XYZAL [Concomitant]
     Active Substance: LEVOCETIRIZINE DIHYDROCHLORIDE
  3. VITAMIN D-400 [Concomitant]
  4. VITAMINS [Concomitant]
     Active Substance: VITAMINS
  5. LUNESTA [Concomitant]
     Active Substance: ESZOPICLONE
  6. OSPHENA [Concomitant]
     Active Substance: OSPEMIFENE
  7. DILTIAZEM [Concomitant]
     Active Substance: DILTIAZEM
  8. LUMIFY [Concomitant]
     Active Substance: BRIMONIDINE TARTRATE
  9. SYSTANE (HYPROMELLOSE 2910 (4000 MPA.S)) [Concomitant]
     Active Substance: HYPROMELLOSE 2910 (4000 MPA.S)
  10. LEVOTHYROXINE SODIUM [Concomitant]
     Active Substance: LEVOTHYROXINE SODIUM

REACTIONS (2)
  - Eye irritation [Unknown]
  - Eye pain [Unknown]
